FAERS Safety Report 7857977-1 (Version None)
Quarter: 2011Q4

REPORT INFORMATION
  Report Type: 
  Country: None (occurrence: None)
  Receive Date: 20111027
  Receipt Date: 20111013
  Transmission Date: 20120403
  Serious: Yes (Other)
  Sender: FDA-Public Use
  Company Number: US-RANBAXY-2011US-49784

PATIENT
  Age: 75 Year
  Sex: Female

DRUGS (2)
  1. METRONIDAZOLE [Suspect]
     Indication: ABDOMINAL ABSCESS
     Dosage: UNK
     Route: 065
  2. CIPROFLOXACIN [Suspect]
     Indication: ABDOMINAL ABSCESS
     Dosage: UNK, UNK
     Route: 065

REACTIONS (2)
  - ACUTE GENERALISED EXANTHEMATOUS PUSTULOSIS [None]
  - TUBULOINTERSTITIAL NEPHRITIS [None]
